FAERS Safety Report 25826520 (Version 1)
Quarter: 2025Q3

REPORT INFORMATION
  Report Type: Spontaneous
  Country: US (occurrence: US)
  Receive Date: 20250920
  Receipt Date: 20250920
  Transmission Date: 20251020
  Serious: No
  Sender: LEADING PHARMA
  Company Number: US-LEADINGPHARMA-US-2025LEASPO00159

PATIENT
  Age: 75 Year

DRUGS (1)
  1. HYDROXYUREA [Suspect]
     Active Substance: HYDROXYUREA
     Indication: Myelofibrosis
     Route: 065

REACTIONS (4)
  - Abnormal loss of weight [Unknown]
  - Decreased appetite [Unknown]
  - Alopecia [Unknown]
  - Product use in unapproved indication [Unknown]
